FAERS Safety Report 9004326 (Version 1)
Quarter: 2013Q1

REPORT INFORMATION
  Report Type: Report from Study
  Country: FR (occurrence: FR)
  Receive Date: 20130108
  Receipt Date: 20130108
  Transmission Date: 20140127
  Serious: Yes (Hospitalization)
  Sender: FDA-Public Use
  Company Number: FR-ROCHE-1176966

PATIENT
  Age: 67 Year
  Sex: Male
  Weight: 69 kg

DRUGS (3)
  1. RITUXIMAB [Suspect]
     Indication: MANTLE CELL LYMPHOMA REFRACTORY
     Dosage: CYCLE 1
     Route: 065
     Dates: start: 20121219, end: 20121219
  2. DEXAMETHASONE [Suspect]
     Indication: MANTLE CELL LYMPHOMA REFRACTORY
     Dosage: CYCLE 1
     Route: 065
     Dates: start: 20121219, end: 20121222
  3. ARA-C [Suspect]
     Indication: MANTLE CELL LYMPHOMA REFRACTORY
     Dosage: CYCLE 1
     Route: 065
     Dates: start: 20121220, end: 20121221

REACTIONS (2)
  - Gastrointestinal haemorrhage [Recovered/Resolved]
  - Thrombocytopenia [Recovered/Resolved]
